FAERS Safety Report 17751355 (Version 1)
Quarter: 2020Q2

REPORT INFORMATION
  Report Type: Report from Study
  Country: CA (occurrence: CA)
  Receive Date: 20200506
  Receipt Date: 20200506
  Transmission Date: 20200714
  Serious: Yes (Hospitalization, Other)
  Sender: FDA-Public Use
  Company Number: CA-TEVA-2020-CA-1231268

PATIENT
  Age: 49 Year
  Sex: Male

DRUGS (4)
  1. TAFINLAR [Interacting]
     Active Substance: DABRAFENIB MESYLATE
     Indication: METASTATIC MALIGNANT MELANOMA
     Route: 048
  2. MEKINIST [Interacting]
     Active Substance: TRAMETINIB DIMETHYL SULFOXIDE
     Indication: METASTATIC MALIGNANT MELANOMA
     Route: 048
  3. SYNTHROID [Concomitant]
     Active Substance: LEVOTHYROXINE SODIUM
     Indication: PRODUCT USED FOR UNKNOWN INDICATION
     Route: 065
  4. ROSUVASTATIN CALCIUM. [Suspect]
     Active Substance: ROSUVASTATIN CALCIUM
     Indication: PRODUCT USED FOR UNKNOWN INDICATION
     Route: 065

REACTIONS (10)
  - Back pain [Unknown]
  - Bone cancer [Unknown]
  - Hepatic neoplasm [Unknown]
  - Labelled drug-drug interaction medication error [Unknown]
  - Lung neoplasm malignant [Unknown]
  - Pruritus [Unknown]
  - Pyrexia [Unknown]
  - Seizure [Unknown]
  - Rash [Unknown]
  - Renal impairment [Unknown]
